FAERS Safety Report 10610303 (Version 2)
Quarter: 2014Q4

REPORT INFORMATION
  Report Type: Spontaneous
  Country: US (occurrence: US)
  Receive Date: 20141126
  Receipt Date: 20141126
  Transmission Date: 20150529
  Serious: Yes (Hospitalization)
  Sender: FDA-Public Use
  Company Number: US-MALLINCKRODT-T201401677

PATIENT
  Age: 25 Year
  Sex: Male

DRUGS (1)
  1. GABLOFEN [Suspect]
     Active Substance: BACLOFEN
     Indication: MUSCLE SPASTICITY
     Dosage: UNK
     Route: 037

REACTIONS (8)
  - Drug withdrawal syndrome [Unknown]
  - Musculoskeletal stiffness [Unknown]
  - Cerebrospinal fluid leakage [Unknown]
  - Dyskinesia [Unknown]
  - Clonus [Unknown]
  - Tremor [Unknown]
  - Device failure [Unknown]
  - Implant site extravasation [Unknown]

NARRATIVE: CASE EVENT DATE: 20140124
